FAERS Safety Report 25958353 (Version 1)
Quarter: 2025Q4

REPORT INFORMATION
  Report Type: Spontaneous
  Country: US (occurrence: US)
  Receive Date: 20251024
  Receipt Date: 20251024
  Transmission Date: 20260118
  Serious: No
  Sender: GALPHARM INTERNATIONAL
  Company Number: US-PERRIGO-25US011170

PATIENT
  Age: 69 Year
  Sex: Female
  Weight: 89.796 kg

DRUGS (2)
  1. NICOTINE POLACRILEX [Suspect]
     Active Substance: NICOTINE
     Indication: Off label use
     Dosage: 1/2 PIECE, SINGLE
     Route: 002
     Dates: start: 20250911, end: 20250911
  2. VITAMINS NOS [Concomitant]
     Active Substance: VITAMINS
     Indication: Product used for unknown indication
     Dosage: UNK
     Route: 065

REACTIONS (6)
  - Oral discomfort [Recovered/Resolved]
  - Intranasal hypoaesthesia [Recovering/Resolving]
  - Hypoaesthesia oral [Recovering/Resolving]
  - Nausea [Recovered/Resolved]
  - Vomiting [Recovered/Resolved]
  - Off label use [Recovered/Resolved]

NARRATIVE: CASE EVENT DATE: 20250911
